FAERS Safety Report 5944610-9 (Version None)
Quarter: 2008Q4

REPORT INFORMATION
  Report Type: 
  Country: None (occurrence: None)
  Receive Date: 20081105
  Receipt Date: 20081023
  Transmission Date: 20090506
  Serious: Yes (Death, Hospitalization)
  Sender: FDA-Public Use
  Company Number: 2008AL011389

PATIENT
  Sex: Male

DRUGS (1)
  1. DIGOXIN [Suspect]
     Dosage: 0.125MG, PO
     Route: 048

REACTIONS (7)
  - ARRHYTHMIA [None]
  - B-CELL SMALL LYMPHOCYTIC LYMPHOMA [None]
  - CARDIAC DISORDER [None]
  - CHRONIC LYMPHOCYTIC LEUKAEMIA [None]
  - EPISTAXIS [None]
  - PLATELET DISORDER [None]
  - VENTRICULAR EXTRASYSTOLES [None]
